FAERS Safety Report 19148119 (Version 1)
Quarter: 2021Q2

REPORT INFORMATION
  Report Type: Spontaneous
  Country: CN (occurrence: CN)
  Receive Date: 20210416
  Receipt Date: 20210416
  Transmission Date: 20210717
  Serious: Yes (Hospitalization, Other)
  Sender: FDA-Public Use
  Company Number: CN-TAKEDA-2021TUS022772

PATIENT
  Age: 59 Year
  Sex: Male
  Weight: 42.4 kg

DRUGS (2)
  1. FOSRENOL [Suspect]
     Active Substance: LANTHANUM CARBONATE
     Indication: HYPERPHOSPHATAEMIA
  2. FOSRENOL [Suspect]
     Active Substance: LANTHANUM CARBONATE
     Indication: AZOTAEMIA
     Dosage: 1 DOSAGE FORM, TID
     Route: 048
     Dates: start: 20210318, end: 20210325

REACTIONS (1)
  - Upper gastrointestinal haemorrhage [Recovering/Resolving]

NARRATIVE: CASE EVENT DATE: 20210325
